FAERS Safety Report 12579274 (Version 1)
Quarter: 2016Q3

REPORT INFORMATION
  Report Type: Spontaneous
  Country: US (occurrence: US)
  Receive Date: 20160721
  Receipt Date: 20160721
  Transmission Date: 20161109
  Serious: Yes (Hospitalization)
  Sender: FDA-Public Use
  Company Number: US-ASTRAZENECA-2016SE77449

PATIENT
  Sex: Female
  Weight: 69.9 kg

DRUGS (2)
  1. FASLODEX [Suspect]
     Active Substance: FULVESTRANT
     Indication: METASTASES TO BONE
     Dosage: 500.0MG UNKNOWN
     Route: 030
     Dates: start: 20160602
  2. FASLODEX [Suspect]
     Active Substance: FULVESTRANT
     Indication: BREAST CANCER FEMALE
     Dosage: 500.0MG UNKNOWN
     Route: 030
     Dates: start: 20160602

REACTIONS (2)
  - Drug dose omission [Unknown]
  - Pneumothorax [Unknown]

NARRATIVE: CASE EVENT DATE: 201606
